FAERS Safety Report 4876790-0 (Version None)
Quarter: 2005Q4

REPORT INFORMATION
  Report Type: 
  Country: None (occurrence: None)
  Receive Date: 20051206
  Receipt Date: 20050802
  Transmission Date: 20060501
  Serious: No
  Sender: FDA-Public Use
  Company Number: USA0508104404

PATIENT
  Age: 59 Year
  Sex: Female
  Weight: 55 kg

DRUGS (4)
  1. CYMBALTA [Suspect]
     Indication: INTERVERTEBRAL DISC PROTRUSION
     Dosage: 60 MG DAY
     Dates: start: 20050501, end: 20050731
  2. TOPAMAX [Concomitant]
  3. PERCOCET [Concomitant]
  4. ATACAND HCT [Concomitant]

REACTIONS (10)
  - ABNORMAL DREAMS [None]
  - ABNORMAL SLEEP-RELATED EVENT [None]
  - CONSTIPATION [None]
  - INSOMNIA [None]
  - MALAISE [None]
  - MIDDLE INSOMNIA [None]
  - NIGHTMARE [None]
  - PARAESTHESIA [None]
  - STOMACH DISCOMFORT [None]
  - TREMOR [None]
